FAERS Safety Report 7806644-9 (Version None)
Quarter: 2011Q4

REPORT INFORMATION
  Report Type: 
  Country: None (occurrence: None)
  Receive Date: 20111011
  Receipt Date: 20111007
  Transmission Date: 20120403
  Serious: Yes (Hospitalization)
  Sender: FDA-Public Use
  Company Number: JP-JNJFOC-20110904974

PATIENT
  Sex: Male

DRUGS (9)
  1. LEVOFLOXACIN [Suspect]
     Indication: SUBCUTANEOUS ABSCESS
     Dosage: 500 MG 1/2 TABLET
     Route: 048
     Dates: start: 20110829, end: 20110903
  2. DORIPENEM MONOHYDRATE [Suspect]
     Indication: INFLAMMATION
     Route: 042
     Dates: end: 20110829
  3. LANTUS [Concomitant]
     Dosage: DOSE - 8 (UNITS UNSPECIFIED)
     Route: 058
     Dates: start: 20110809
  4. NOVORAPID [Concomitant]
     Dosage: DOSE- 6(UNITS UNSPECIFIED)
     Route: 058
     Dates: start: 20110805
  5. ALLOPURINOL [Concomitant]
     Route: 048
     Dates: start: 20110810
  6. PPI [Concomitant]
     Route: 048
     Dates: start: 20110810
  7. ZOLPIDEM [Concomitant]
     Route: 048
     Dates: start: 20110812
  8. DORIPENEM MONOHYDRATE [Suspect]
     Route: 042
     Dates: start: 20110903
  9. LASIX [Concomitant]
     Route: 048
     Dates: start: 20110805

REACTIONS (1)
  - AGRANULOCYTOSIS [None]
